FAERS Safety Report 24717608 (Version 4)
Quarter: 2025Q2

REPORT INFORMATION
  Report Type: Spontaneous
  Country: AU (occurrence: AU)
  Receive Date: 20241210
  Receipt Date: 20250509
  Transmission Date: 20250716
  Serious: Yes (Death, Hospitalization, Other)
  Sender: RANBAXY
  Company Number: AU-SUN PHARMACEUTICAL INDUSTRIES LTD-2024R1-482815

PATIENT
  Sex: Male

DRUGS (9)
  1. LAMIVUDINE [Suspect]
     Active Substance: LAMIVUDINE
     Indication: HIV infection
     Route: 065
  2. ABACAVIR [Suspect]
     Active Substance: ABACAVIR
     Indication: HIV infection
     Route: 065
  3. TICAGRELOR [Suspect]
     Active Substance: TICAGRELOR
     Indication: Acute myocardial infarction
     Route: 065
  4. ASPIRIN [Suspect]
     Active Substance: ASPIRIN
     Indication: Coronary ostial stenosis
     Route: 065
  5. PREZCOBIX [Suspect]
     Active Substance: COBICISTAT\DARUNAVIR ETHANOLATE
     Indication: HIV infection
     Route: 065
  6. DEXTROAMPHETAMINE SULFATE [Suspect]
     Active Substance: DEXTROAMPHETAMINE SULFATE
     Indication: Attention deficit hyperactivity disorder
     Route: 065
  7. SYMTUZA [Suspect]
     Active Substance: COBICISTAT\DARUNAVIR\EMTRICITABINE\TENOFOVIR ALAFENAMIDE
     Indication: HIV infection
     Route: 065
  8. HEPARIN [Suspect]
     Active Substance: HEPARIN SODIUM
     Indication: Acute myocardial infarction
     Route: 042
  9. TIROFIBAN [Suspect]
     Active Substance: TIROFIBAN
     Indication: Acute myocardial infarction
     Route: 065

REACTIONS (13)
  - Acute myocardial infarction [Fatal]
  - Death [Fatal]
  - Multiple organ dysfunction syndrome [Fatal]
  - Chest pain [Fatal]
  - Coronary artery occlusion [Fatal]
  - Coronary artery stenosis [Fatal]
  - Coronary ostial stenosis [Fatal]
  - Shock [Fatal]
  - Attention deficit hyperactivity disorder [Fatal]
  - Dyspnoea exertional [Fatal]
  - Fatigue [Fatal]
  - Gastrooesophageal reflux disease [Fatal]
  - Fatigue [Unknown]
